FAERS Safety Report 6319519-1 (Version None)
Quarter: 2009Q3

REPORT INFORMATION
  Report Type: 
  Country: None (occurrence: None)
  Receive Date: 20090822
  Receipt Date: 20080911
  Transmission Date: 20100115
  Serious: No
  Sender: FDA-Public Use
  Company Number: US-ABBOTT-08P-163-0475641-00

PATIENT
  Sex: Female
  Weight: 85.352 kg

DRUGS (7)
  1. NIASPAN [Suspect]
     Indication: BLOOD CHOLESTEROL
     Route: 048
     Dates: start: 20080731
  2. NIASPAN [Suspect]
     Route: 048
  3. VOLTARAN [Concomitant]
     Indication: ARTHRITIS
     Route: 048
  4. PARACETAMOL [Concomitant]
     Indication: DRUG USE FOR UNKNOWN INDICATION
     Route: 048
  5. ESTRADIOL [Concomitant]
     Indication: DRUG USE FOR UNKNOWN INDICATION
     Route: 061
     Dates: start: 20080601
  6. PROGESTERONE [Concomitant]
     Indication: DRUG USE FOR UNKNOWN INDICATION
     Route: 061
     Dates: start: 20080601
  7. GABAPENTIN [Concomitant]
     Indication: PAIN
     Dosage: AT NIGHT
     Route: 048
     Dates: start: 20080801

REACTIONS (4)
  - ASTHENIA [None]
  - FLUSHING [None]
  - LOSS OF CONSCIOUSNESS [None]
  - MEDICATION RESIDUE [None]
